FAERS Safety Report 7712025-9 (Version None)
Quarter: 2011Q3

REPORT INFORMATION
  Report Type: 
  Country: None (occurrence: None)
  Receive Date: 20110826
  Receipt Date: 20110823
  Transmission Date: 20111222
  Serious: Yes (Disabling)
  Sender: FDA-Public Use
  Company Number: FR-SANOFI-AVENTIS-2011SA046847

PATIENT
  Age: 30 Year
  Sex: Female

DRUGS (2)
  1. KETEK [Suspect]
     Route: 048
     Dates: start: 20091001, end: 20091001
  2. ESTRADIOL [Concomitant]

REACTIONS (6)
  - HYPOAESTHESIA [None]
  - VIITH NERVE PARALYSIS [None]
  - GAIT DISTURBANCE [None]
  - PARAESTHESIA [None]
  - IIIRD NERVE DISORDER [None]
  - APHASIA [None]
